FAERS Safety Report 7824847-4 (Version None)
Quarter: 2011Q4

REPORT INFORMATION
  Report Type: 
  Country: None (occurrence: None)
  Receive Date: 20111019
  Receipt Date: 20110214
  Transmission Date: 20120403
  Serious: No
  Sender: FDA-Public Use
  Company Number: US-BRISTOL-MYERS SQUIBB COMPANY-15547979

PATIENT
  Age: 61 Year
  Sex: Female

DRUGS (4)
  1. NAPROXEN [Concomitant]
  2. NORVASC [Concomitant]
  3. METFORMIN HCL [Concomitant]
  4. AVALIDE [Suspect]
     Dosage: 1 DF:300/25 MG

REACTIONS (2)
  - DRY SKIN [None]
  - PRURITUS [None]
